FAERS Safety Report 17467167 (Version 1)
Quarter: 2020Q1

REPORT INFORMATION
  Report Type: Spontaneous
  Country: US (occurrence: US)
  Receive Date: 20200214
  Receipt Date: 20200214
  Transmission Date: 20200409
  Serious: No
  Sender: FDA-Public Use
  Company Number: None

PATIENT
  Age: 51 Year
  Sex: Female

DRUGS (13)
  1. FAMOTIDINE. [Concomitant]
     Active Substance: FAMOTIDINE
  2. GABAPENTIN. [Concomitant]
     Active Substance: GABAPENTIN
  3. HYDROXYZ HCL [Concomitant]
     Active Substance: HYDROXYZINE HYDROCHLORIDE
  4. PHENZOPYRID [Concomitant]
  5. URSODIOL. [Concomitant]
     Active Substance: URSODIOL
  6. OMEPRAZOLE. [Concomitant]
     Active Substance: OMEPRAZOLE
  7. OCALIVA [Suspect]
     Active Substance: OBETICHOLIC ACID
     Indication: PRIMARY BILIARY CHOLANGITIS
     Route: 048
     Dates: start: 20191023
  8. OXYCODONE [Concomitant]
     Active Substance: OXYCODONE
  9. TRAZODONE [Concomitant]
     Active Substance: TRAZODONE HYDROCHLORIDE
  10. NITROFURANTN [Concomitant]
     Active Substance: NITROFURANTOIN
  11. LACTULOSE. [Concomitant]
     Active Substance: LACTULOSE
  12. CLYLCOBENZAPR [Concomitant]
  13. DOK [Concomitant]
     Active Substance: DOCUSATE SODIUM

REACTIONS (4)
  - Urinary tract infection [None]
  - Memory impairment [None]
  - Pruritus [None]
  - Fatigue [None]
